FAERS Safety Report 9748151 (Version 1)
Quarter: 2013Q4

REPORT INFORMATION
  Report Type: Spontaneous
  Country: US (occurrence: US)
  Receive Date: 20131212
  Receipt Date: 20131212
  Transmission Date: 20140711
  Serious: No
  Sender: FDA-Public Use
  Company Number: US-PFIZER INC-2013353876

PATIENT
  Age: 56 Year
  Sex: Female
  Weight: 53.06 kg

DRUGS (19)
  1. PRISTIQ [Suspect]
     Indication: MENOPAUSAL SYMPTOMS
     Dosage: 50 MG, DAILY
     Dates: start: 2013
  2. PRISTIQ [Suspect]
     Indication: FATIGUE
  3. PRISTIQ [Suspect]
     Indication: WEIGHT DECREASED
  4. PRISTIQ [Suspect]
     Indication: DECREASED APPETITE
  5. SERTRALINE HCL [Suspect]
     Indication: MENOPAUSAL SYMPTOMS
     Dosage: 50 MG, DAILY
     Dates: start: 20130904, end: 201309
  6. SERTRALINE HCL [Suspect]
     Indication: FATIGUE
     Dosage: 100 MG, DAILY
     Dates: start: 201309, end: 201309
  7. SERTRALINE HCL [Suspect]
     Indication: WEIGHT DECREASED
     Dosage: UNK, DAILY
     Dates: start: 201309, end: 20130925
  8. SERTRALINE HCL [Suspect]
     Indication: DECREASED APPETITE
  9. PROGESTERONE [Suspect]
     Indication: MENOPAUSAL SYMPTOMS
     Dosage: UNK
  10. PROGESTERONE [Suspect]
     Indication: FATIGUE
     Dosage: UNK, 10 DAYS MONTHLY
     Dates: start: 201307
  11. PROGESTERONE [Suspect]
     Indication: WEIGHT DECREASED
  12. PROGESTERONE [Suspect]
     Indication: DECREASED APPETITE
  13. TRAZODONE [Suspect]
     Indication: MENOPAUSAL SYMPTOMS
     Dosage: UNK
     Dates: start: 2013, end: 2013
  14. TRAZODONE [Suspect]
     Indication: FATIGUE
  15. TRAZODONE [Suspect]
     Indication: WEIGHT DECREASED
  16. TRAZODONE [Suspect]
     Indication: DECREASED APPETITE
  17. LEVOTHYROXINE SODIUM [Concomitant]
     Indication: HYPOTHYROIDISM
     Dosage: 50 UG, DAILY
  18. NUVAPRIN HD [Concomitant]
     Indication: VARICOSE VEIN
     Dosage: UNK
  19. CALCIUM CITRATE/MAGNESIUM [Concomitant]
     Dosage: UNK

REACTIONS (9)
  - Off label use [Unknown]
  - Weight decreased [Recovered/Resolved]
  - Decreased appetite [Recovered/Resolved]
  - Fatigue [Recovered/Resolved]
  - Feeling abnormal [Recovered/Resolved]
  - Irritability [Recovered/Resolved]
  - Drug ineffective [Unknown]
  - Pre-existing condition improved [Unknown]
  - Therapeutic response unexpected [Unknown]
